FAERS Safety Report 6656985-6 (Version None)
Quarter: 2010Q1

REPORT INFORMATION
  Report Type: 
  Country: None (occurrence: None)
  Receive Date: 20100330
  Receipt Date: 20100322
  Transmission Date: 20100710
  Serious: No
  Sender: FDA-Public Use
  Company Number: US-BIOGENIDEC-2010BI008187

PATIENT
  Age: 41 Year
  Sex: Female

DRUGS (2)
  1. TYSABRI [Suspect]
     Indication: MULTIPLE SCLEROSIS
     Route: 042
     Dates: start: 20090616
  2. REBIF [Concomitant]
     Indication: MULTIPLE SCLEROSIS

REACTIONS (3)
  - INFLUENZA [None]
  - PRODUCTIVE COUGH [None]
  - RASH PUSTULAR [None]
